FAERS Safety Report 5220221-8 (Version None)
Quarter: 2006Q4

REPORT INFORMATION
  Report Type: 
  Country: None (occurrence: None)
  Receive Date: 20061201
  Receipt Date: 20060721
  Transmission Date: 20070319
  Serious: No
  Sender: FDA-Public Use
  Company Number: 2006PV017980

PATIENT
  Age: 60 Year
  Sex: Female
  Weight: 115.2136 kg

DRUGS (3)
  1. BYETTA [Suspect]
     Indication: DIABETES MELLITUS NON-INSULIN-DEPENDENT
     Dosage: SEE IMAGE
     Route: 058
     Dates: start: 20060603, end: 20060703
  2. BYETTA [Suspect]
     Indication: DIABETES MELLITUS NON-INSULIN-DEPENDENT
     Dosage: SEE IMAGE
     Route: 058
     Dates: start: 20060704, end: 20060717
  3. LANTUS [Concomitant]

REACTIONS (7)
  - DECREASED APPETITE [None]
  - INCREASED APPETITE [None]
  - INJECTION SITE INDURATION [None]
  - INJECTION SITE URTICARIA [None]
  - NAUSEA [None]
  - THERAPEUTIC RESPONSE UNEXPECTED [None]
  - WEIGHT DECREASED [None]
